FAERS Safety Report 8100691-8 (Version None)
Quarter: 2012Q1

REPORT INFORMATION
  Report Type: 
  Country: None (occurrence: None)
  Receive Date: 20120129
  Receipt Date: 20111107
  Transmission Date: 20120608
  Serious: No
  Sender: FDA-Public Use
  Company Number: US-ABBOTT-11P-163-0871976-00

PATIENT
  Sex: Female

DRUGS (9)
  1. HUMIRA [Suspect]
     Dates: start: 20111001
  2. ALPRAZOLAM [Concomitant]
     Indication: PRODUCT USED FOR UNKNOWN INDICATION
  3. CELEBREX [Concomitant]
     Indication: RHEUMATOID ARTHRITIS
  4. SIMVASTATIN [Concomitant]
     Indication: PRODUCT USED FOR UNKNOWN INDICATION
  5. TEMAZEPAM [Concomitant]
     Indication: PRODUCT USED FOR UNKNOWN INDICATION
     Dosage: ONE AT BEDTIME
  6. IMITREX [Concomitant]
     Indication: MIGRAINE
  7. CARISOPRODOL [Concomitant]
     Indication: PRODUCT USED FOR UNKNOWN INDICATION
  8. HUMIRA [Suspect]
     Indication: RHEUMATOID ARTHRITIS
     Route: 058
     Dates: start: 20091103, end: 20111001
  9. VENLASAXINE ER [Concomitant]
     Indication: PRODUCT USED FOR UNKNOWN INDICATION

REACTIONS (5)
  - RHEUMATOID ARTHRITIS [None]
  - GAIT DISTURBANCE [None]
  - DRUG INEFFECTIVE [None]
  - PAIN IN EXTREMITY [None]
  - OEDEMA PERIPHERAL [None]
